FAERS Safety Report 4834422-1 (Version None)
Quarter: 2005Q4

REPORT INFORMATION
  Report Type: 
  Country: None (occurrence: None)
  Receive Date: 20051114
  Receipt Date: 20051101
  Transmission Date: 20060501
  Serious: Yes (Other)
  Sender: FDA-Public Use
  Company Number: 2005126842

PATIENT
  Sex: Female

DRUGS (6)
  1. DILANTIN KAPSEAL [Suspect]
     Indication: CONVULSION
     Dosage: 500 MG (250 MG, 2 IN 1 D), ORAL
     Route: 048
  2. TOPAMAX [Suspect]
     Indication: CONVULSION
     Dosage: 300 MG (100 MG, 3 IN 1 D),
  3. SINGULAIR ^DIECKMANN^ (MONTELUKAST SODIUM) [Concomitant]
  4. ADVAIR DISKUS 100/50 [Concomitant]
  5. LISINOPRIL [Concomitant]
  6. PHENOBARBITAL TAB [Concomitant]

REACTIONS (9)
  - BODY HEIGHT DECREASED [None]
  - CONDITION AGGRAVATED [None]
  - CONVULSION [None]
  - FALL [None]
  - LIMB INJURY [None]
  - MUSCLE STRAIN [None]
  - OSTEOPOROSIS [None]
  - TRANSIENT ISCHAEMIC ATTACK [None]
  - WEIGHT DECREASED [None]
